FAERS Safety Report 13270585 (Version 1)
Quarter: 2017Q1

REPORT INFORMATION
  Report Type: Spontaneous
  Country: DE (occurrence: DE)
  Receive Date: 20170224
  Receipt Date: 20170224
  Transmission Date: 20170428
  Serious: Yes (Other)
  Sender: FDA-Public Use
  Company Number: GXKR2017DE001232

PATIENT
  Age: 60 Year
  Sex: Female

DRUGS (2)
  1. VOLTAREN [Concomitant]
     Active Substance: DICLOFENAC SODIUM
     Indication: PRODUCT USED FOR UNKNOWN INDICATION
  2. CANDESARTAN - 1 A PHARMA [Suspect]
     Active Substance: CANDESARTAN
     Indication: HYPERTENSION
     Dosage: 16 MG, TWICE DAILY
     Route: 048

REACTIONS (13)
  - Chest discomfort [Unknown]
  - Nocturia [Unknown]
  - Asthma [Unknown]
  - Bronchitis [Unknown]
  - Oropharyngeal pain [Unknown]
  - Back pain [Unknown]
  - Infection susceptibility increased [Unknown]
  - Condition aggravated [Unknown]
  - Myalgia [Unknown]
  - Pain in jaw [Unknown]
  - Dyspnoea [Unknown]
  - Nausea [Unknown]
  - Diarrhoea [Not Recovered/Not Resolved]
